FAERS Safety Report 6713577-8 (Version None)
Quarter: 2010Q2

REPORT INFORMATION
  Report Type: 
  Country: None (occurrence: None)
  Receive Date: 20100503
  Receipt Date: 20100416
  Transmission Date: 20101027
  Serious: Yes (Other)
  Sender: FDA-Public Use
  Company Number: DSA_43041_2010

PATIENT
  Sex: Female

DRUGS (6)
  1. BUPROPION HYDROCHLORIDE (WELLBUTRIN XR BUPROPION HYDROCHLORIDE EXTENDE [Suspect]
     Indication: AFFECTIVE DISORDER
     Dosage: 300 MG QD ORAL
     Route: 048
     Dates: start: 20080620, end: 20080714
  2. BUPROPION HYDROCHLORIDE (WELLBUTRIN XR BUPROPION HYDROCHLORIDE EXTENDE [Suspect]
     Indication: DEPRESSION
     Dosage: 300 MG QD ORAL
     Route: 048
     Dates: start: 20080620, end: 20080714
  3. OMEPRAZOLE [Concomitant]
  4. FOSAVANCE [Concomitant]
  5. ZALDIAR [Concomitant]
  6. ENALAPRIL MALEATE [Concomitant]

REACTIONS (1)
  - HALLUCINATION, VISUAL [None]
